FAERS Safety Report 11240653 (Version 1)
Quarter: 2015Q3

REPORT INFORMATION
  Report Type: Spontaneous
  Country: ES (occurrence: ES)
  Receive Date: 20150706
  Receipt Date: 20150706
  Transmission Date: 20151125
  Serious: Yes (Other)
  Sender: FDA-Public Use
  Company Number: PHHY2015ES078838

PATIENT

DRUGS (2)
  1. A.N.T.//ACETYLSALICYLIC ACID [Concomitant]
     Indication: PRODUCT USED FOR UNKNOWN INDICATION
     Dosage: 100 MG, QD
     Route: 065
  2. ENOXAPARIN [Suspect]
     Active Substance: ENOXAPARIN
     Indication: ISCHAEMIC STROKE
     Dosage: 40 MG, UNK
     Route: 065

REACTIONS (6)
  - Dermatitis bullous [Unknown]
  - Skin lesion [Unknown]
  - Prurigo [Unknown]
  - Thrombocytopenia [Unknown]
  - Haemorrhagic transformation stroke [Unknown]
  - Blister [Unknown]
